FAERS Safety Report 15657938 (Version 3)
Quarter: 2019Q2

REPORT INFORMATION
  Report Type: Spontaneous
  Country: US (occurrence: US)
  Receive Date: 20181126
  Receipt Date: 20190429
  Transmission Date: 20190711
  Serious: Yes (Other)
  Sender: FDA-Public Use
  Company Number: US-PFIZER INC-2018486218

PATIENT
  Age: 63 Year
  Sex: Female

DRUGS (3)
  1. XELJANZ XR [Suspect]
     Active Substance: TOFACITINIB CITRATE
     Indication: RHEUMATOID ARTHRITIS
     Dosage: 11 MG, DAILY
     Route: 048
     Dates: start: 201808
  2. PREDNISONE. [Concomitant]
     Active Substance: PREDNISONE
     Dosage: UNK
  3. METHOTREXATE. [Concomitant]
     Active Substance: METHOTREXATE
     Dosage: UNK

REACTIONS (10)
  - Diarrhoea [Unknown]
  - Road traffic accident [Unknown]
  - Rib fracture [Unknown]
  - Rotator cuff syndrome [Unknown]
  - Therapeutic product effect incomplete [Unknown]
  - Arthralgia [Not Recovered/Not Resolved]
  - Fall [Unknown]
  - Pain in extremity [Not Recovered/Not Resolved]
  - Cough [Unknown]
  - Sinusitis [Unknown]
